FAERS Safety Report 8293857-8 (Version None)
Quarter: 2012Q2

REPORT INFORMATION
  Report Type: 
  Country: None (occurrence: None)
  Receive Date: 20120418
  Receipt Date: 20120413
  Transmission Date: 20120825
  Serious: No
  Sender: FDA-Public Use
  Company Number: US-PFIZER INC-2012092440

PATIENT
  Sex: Male

DRUGS (2)
  1. SUTENT [Suspect]
     Indication: NEUROENDOCRINE TUMOUR
     Dosage: 25 MG, UNK
     Dates: start: 20110728, end: 20120402
  2. SUTENT [Suspect]
     Indication: METASTASES TO LIVER

REACTIONS (1)
  - EJECTION FRACTION DECREASED [None]
